FAERS Safety Report 17663153 (Version 1)
Quarter: 2020Q2

REPORT INFORMATION
  Report Type: Report from Study
  Country: AU (occurrence: AU)
  Receive Date: 20200413
  Receipt Date: 20200413
  Transmission Date: 20200713
  Serious: Yes (Death)
  Sender: FDA-Public Use
  Company Number: AU-TOLMAR, INC.-19AU000665

PATIENT
  Sex: Male

DRUGS (1)
  1. ELIGARD [Suspect]
     Active Substance: LEUPROLIDE ACETATE
     Indication: PROSTATE CANCER
     Dosage: 45 MG, EVERY 6 MONTHS
     Route: 058
     Dates: start: 20151020

REACTIONS (2)
  - Death [Fatal]
  - Memory impairment [Unknown]
